FAERS Safety Report 17293712 (Version 1)
Quarter: 2020Q1

REPORT INFORMATION
  Report Type: Spontaneous
  Country: US (occurrence: US)
  Receive Date: 20200121
  Receipt Date: 20200121
  Transmission Date: 20200409
  Serious: No
  Sender: FDA-Public Use
  Company Number: US-SA-2014SA178608

PATIENT
  Age: 67 Year
  Sex: Female

DRUGS (3)
  1. LANTUS SOLOSTAR [Suspect]
     Active Substance: INSULIN GLARGINE
     Dosage: 55 IU
     Route: 065
  2. LANTUS SOLOSTAR [Suspect]
     Active Substance: INSULIN GLARGINE
     Indication: TYPE 2 DIABETES MELLITUS
     Dosage: UNK UNK,HS
     Route: 065
     Dates: start: 2004
  3. LANTUS SOLOSTAR [Suspect]
     Active Substance: INSULIN GLARGINE
     Dosage: UNK UNK,HS
     Route: 065
     Dates: start: 2004

REACTIONS (7)
  - Visual impairment [Unknown]
  - Product dose omission [Recovered/Resolved]
  - Headache [Unknown]
  - Device operational issue [Recovered/Resolved]
  - Eye pain [Unknown]
  - Wrong technique in device usage process [Unknown]
  - Blood glucose increased [Recovered/Resolved]
